FAERS Safety Report 20476002 (Version 2)
Quarter: 2022Q3

REPORT INFORMATION
  Report Type: Spontaneous
  Country: JP (occurrence: JP)
  Receive Date: 20220215
  Receipt Date: 20220701
  Transmission Date: 20221026
  Serious: Yes (Hospitalization)
  Sender: FDA-Public Use
  Company Number: JP-DSJP-DSJ-2022-104753

PATIENT
  Age: 51 Year
  Sex: Female
  Weight: 63.2 kg

DRUGS (7)
  1. EDOXABAN TOSYLATE [Suspect]
     Active Substance: EDOXABAN TOSYLATE
     Indication: Thrombosis prophylaxis
     Dosage: 30 MG, QD
     Route: 048
     Dates: start: 20210908, end: 20210917
  2. DIETARY SUPPLEMENT\PROBIOTICS [Concomitant]
     Active Substance: DIETARY SUPPLEMENT\PROBIOTICS
     Dosage: 1 DF, TID
     Route: 048
     Dates: start: 20210908
  3. CARBOCYSTEINE [Concomitant]
     Active Substance: CARBOCYSTEINE
     Indication: Eosinophilia
     Dosage: 500 MG, TID
     Route: 048
     Dates: start: 20210908, end: 20210917
  4. CALONAL [Concomitant]
     Active Substance: ACETAMINOPHEN
     Indication: Eosinophilia
     Dosage: 400 MG, QID
     Route: 048
     Dates: start: 20210908, end: 20210917
  5. AMBROXOL HYDROCHLORIDE [Concomitant]
     Active Substance: AMBROXOL HYDROCHLORIDE
     Indication: Eosinophilia
     Dosage: 45 MG, QD
     Route: 048
     Dates: start: 20210908, end: 20210917
  6. LANSOPRAZOLE [Concomitant]
     Active Substance: LANSOPRAZOLE
     Dosage: 15 MG, QD
     Route: 048
     Dates: start: 20210908
  7. GUAIAZULENE [Concomitant]
     Active Substance: GUAIAZULENE
     Dosage: UNK UNK, AS NEEDED
     Route: 050
     Dates: start: 20210908

REACTIONS (2)
  - Abdominal wall haematoma [Recovered/Resolved]
  - Muscle abscess [Recovered/Resolved]

NARRATIVE: CASE EVENT DATE: 20210917
